FAERS Safety Report 23785527 (Version 1)
Quarter: 2024Q2

REPORT INFORMATION
  Report Type: Report from Study
  Country: CA (occurrence: CA)
  Receive Date: 20240425
  Receipt Date: 20240425
  Transmission Date: 20240715
  Serious: Yes (Death, Other)
  Sender: FDA-Public Use
  Company Number: CA-VER-202400272

PATIENT
  Age: 73 Year
  Sex: Male

DRUGS (8)
  1. TRIPTORELIN PAMOATE [Suspect]
     Active Substance: TRIPTORELIN PAMOATE
     Indication: Prostate cancer
     Dosage: POWDER FOR PROLONGED-RELEASE SUSPENSION FOR INJECTION
     Route: 030
  2. TRIPTORELIN PAMOATE [Suspect]
     Active Substance: TRIPTORELIN PAMOATE
     Indication: Prostate cancer
     Dosage: POWDER FOR PROLONGED-RELEASE SUSPENSION FOR INJECTION
     Route: 030
     Dates: start: 20240222, end: 20240222
  3. TRIPTORELIN PAMOATE [Suspect]
     Active Substance: TRIPTORELIN PAMOATE
     Indication: Prostate cancer
     Dosage: POWDER FOR PROLONGED-RELEASE SUSPENSION FOR INJECTION
     Route: 030
     Dates: start: 20220419, end: 20220419
  4. TRIPTORELIN PAMOATE [Suspect]
     Active Substance: TRIPTORELIN PAMOATE
     Indication: Prostate cancer
     Dosage: POWDER FOR PROLONGED-RELEASE SUSPENSION FOR INJECTION
     Route: 031
     Dates: start: 20220719, end: 20220719
  5. TRIPTORELIN PAMOATE [Suspect]
     Active Substance: TRIPTORELIN PAMOATE
     Indication: Prostate cancer
     Dosage: POWDER FOR PROLONGED-RELEASE SUSPENSION FOR INJECTION
     Route: 030
     Dates: start: 20221018, end: 20221018
  6. TRIPTORELIN PAMOATE [Suspect]
     Active Substance: TRIPTORELIN PAMOATE
     Indication: Prostate cancer
     Dosage: POWDER FOR PROLONGED-RELEASE SUSPENSION FOR INJECTION
     Route: 030
     Dates: start: 20230124, end: 20230124
  7. TRIPTORELIN PAMOATE [Suspect]
     Active Substance: TRIPTORELIN PAMOATE
     Indication: Prostate cancer
     Dosage: POWDER FOR PROLONGED-RELEASE SUSPENSION FOR INJECTION
     Route: 030
     Dates: start: 20230418, end: 20230418
  8. TRIPTORELIN PAMOATE [Suspect]
     Active Substance: TRIPTORELIN PAMOATE
     Indication: Prostate cancer
     Dosage: POWDER FOR PROLONGED-RELEASE SUSPENSION FOR INJECTION
     Route: 030
     Dates: start: 20230719, end: 20230719

REACTIONS (2)
  - Inappropriate schedule of product administration [Recovered/Resolved]
  - Death [Fatal]

NARRATIVE: CASE EVENT DATE: 20240404
